FAERS Safety Report 24073904 (Version 2)
Quarter: 2024Q3

REPORT INFORMATION
  Report Type: Spontaneous
  Country: US (occurrence: US)
  Receive Date: 20240710
  Receipt Date: 20240809
  Transmission Date: 20241017
  Serious: No
  Sender: PFIZER
  Company Number: US-PFIZER INC-PV202400088487

PATIENT
  Age: 25 Year
  Sex: Female
  Weight: 52.789 kg

DRUGS (3)
  1. SOMATROPIN [Suspect]
     Active Substance: SOMATROPIN
     Indication: Hypopituitarism
     Dosage: 0.6 MG, DAILY
     Route: 058
  2. SOMATROPIN [Suspect]
     Active Substance: SOMATROPIN
     Indication: Growth hormone deficiency
  3. SOMATROPIN [Suspect]
     Active Substance: SOMATROPIN
     Indication: Hypopituitarism

REACTIONS (7)
  - Blood chloride increased [Unknown]
  - Insulin-like growth factor abnormal [Unknown]
  - Vitamin D abnormal [Unknown]
  - Blood growth hormone decreased [Unknown]
  - Sleep apnoea syndrome [Unknown]
  - Poor quality sleep [Unknown]
  - Snoring [Unknown]
